FAERS Safety Report 21039931 (Version 1)
Quarter: 2022Q3

REPORT INFORMATION
  Report Type: Spontaneous
  Country: US (occurrence: US)
  Receive Date: 20220704
  Receipt Date: 20220704
  Transmission Date: 20221027
  Serious: No
  Sender: FDA-Public Use
  Company Number: US-AMGEN-USASP2022111448

PATIENT

DRUGS (1)
  1. EPOETIN ALFA [Suspect]
     Active Substance: ERYTHROPOIETIN
     Indication: Nephrogenic anaemia
     Dosage: UNK
     Route: 065

REACTIONS (8)
  - Fatigue [Unknown]
  - Disturbance in attention [Unknown]
  - Dyspnoea [Unknown]
  - Gait disturbance [Unknown]
  - Pollakiuria [Unknown]
  - Feeling cold [Unknown]
  - Dizziness [Unknown]
  - Nausea [Unknown]
